FAERS Safety Report 16426719 (Version 1)
Quarter: 2019Q2

REPORT INFORMATION
  Report Type: Spontaneous
  Country: BR (occurrence: BR)
  Receive Date: 20190613
  Receipt Date: 20190613
  Transmission Date: 20190711
  Serious: Yes (Other)
  Sender: FDA-Public Use
  Company Number: PHHY2019BR134933

PATIENT
  Age: 54 Year
  Sex: Female
  Weight: 58 kg

DRUGS (4)
  1. LETROZOLE. [Suspect]
     Active Substance: LETROZOLE
     Indication: BONE NEOPLASM
     Dosage: UNK
     Route: 065
     Dates: start: 201901
  2. IBRANCE [Suspect]
     Active Substance: PALBOCICLIB
     Indication: BONE NEOPLASM
     Dosage: UNK
     Route: 065
     Dates: start: 201901
  3. LETROZOLE. [Suspect]
     Active Substance: LETROZOLE
     Indication: HEPATIC NEOPLASM
  4. IBRANCE [Suspect]
     Active Substance: PALBOCICLIB
     Indication: HEPATIC NEOPLASM

REACTIONS (3)
  - Bone lesion [Unknown]
  - Drug ineffective for unapproved indication [Unknown]
  - Hepatic lesion [Unknown]
